FAERS Safety Report 25981167 (Version 1)
Quarter: 2025Q4

REPORT INFORMATION
  Report Type: Spontaneous
  Country: US (occurrence: US)
  Receive Date: 20251030
  Receipt Date: 20251030
  Transmission Date: 20260117
  Serious: Yes (Other)
  Sender: DIFGEN PHARMACEUTICALS LLC
  Company Number: US-Difgen-012213

PATIENT

DRUGS (1)
  1. BUPRENORPHINE HYDROCHLORIDE\NALOXONE HYDROCHLORIDE [Suspect]
     Active Substance: BUPRENORPHINE HYDROCHLORIDE\NALOXONE HYDROCHLORIDE
     Indication: Product used for unknown indication
     Route: 060

REACTIONS (5)
  - Diastema [Not Recovered/Not Resolved]
  - Toothache [Not Recovered/Not Resolved]
  - Gingival discolouration [Recovered/Resolved]
  - Incorrect route of product administration [Unknown]
  - Tooth erosion [Not Recovered/Not Resolved]
